FAERS Safety Report 18659946 (Version 1)
Quarter: 2020Q4

REPORT INFORMATION
  Report Type: Spontaneous
  Country: US (occurrence: US)
  Receive Date: 20201223
  Receipt Date: 20201223
  Transmission Date: 20210114
  Serious: Yes (Hospitalization)
  Sender: FDA-Public Use
  Company Number: None

PATIENT
  Age: 89 Year
  Sex: Male
  Weight: 71.5 kg

DRUGS (1)
  1. BAMLANIVIMAB. [Suspect]
     Active Substance: BAMLANIVIMAB
     Indication: SARS-COV-2 ANTIBODY TEST POSITIVE
     Route: 041
     Dates: start: 20201221, end: 20201221

REACTIONS (2)
  - Asthenia [None]
  - Productive cough [None]

NARRATIVE: CASE EVENT DATE: 20201222
